APPROVED DRUG PRODUCT: METHOTREXATE SODIUM PRESERVATIVE FREE
Active Ingredient: METHOTREXATE SODIUM
Strength: EQ 250MG BASE/10ML (EQ 25MG BASE/ML)
Dosage Form/Route: INJECTABLE;INJECTION
Application: A089343 | Product #001 | TE Code: AP
Applicant: HIKMA PHARMACEUTICALS USA INC
Approved: Sep 16, 1986 | RLD: No | RS: No | Type: RX